FAERS Safety Report 9134381 (Version 1)
Quarter: 2013Q1

REPORT INFORMATION
  Report Type: Spontaneous
  Country: US (occurrence: US)
  Receive Date: 20130304
  Receipt Date: 20130304
  Transmission Date: 20140127
  Serious: Yes (Other)
  Sender: FDA-Public Use
  Company Number: US-JNJFOC-20130211977

PATIENT
  Sex: Female
  Weight: 58.97 kg

DRUGS (3)
  1. CONCERTA [Suspect]
     Indication: NARCOLEPSY
     Route: 048
     Dates: start: 2001
  2. METHYLPHENIDATE HYDROCHLORIDE [Suspect]
     Indication: NARCOLEPSY
     Route: 048
     Dates: end: 201301
  3. METHYLPHENIDATE HYDROCHLORIDE [Suspect]
     Indication: NARCOLEPSY
     Route: 048

REACTIONS (3)
  - Abortion spontaneous [Unknown]
  - Exposure during pregnancy [Recovered/Resolved]
  - Off label use [Unknown]
